FAERS Safety Report 4704495-5 (Version None)
Quarter: 2005Q2

REPORT INFORMATION
  Report Type: 
  Country: None (occurrence: None)
  Receive Date: 20050628
  Receipt Date: 20050615
  Transmission Date: 20051028
  Serious: Yes (Hospitalization)
  Sender: FDA-Public Use
  Company Number: JP_050606838

PATIENT
  Age: 52 Year
  Sex: Female
  Weight: 64 kg

DRUGS (14)
  1. ZYPREXA [Suspect]
     Indication: SCHIZOPHRENIA
     Dosage: 10 MG/1 DAY
     Dates: start: 20040525
  2. ZOTEPINE [Concomitant]
  3. RISPERDAL [Concomitant]
  4. BICAMOL (BIPERIDEN HYDROCHLORIDE) [Concomitant]
  5. ROHYPNOL (FLUNITRAZEPAM) [Concomitant]
  6. SANOTENSIN (GUANETHIDINE SULFATE) [Concomitant]
  7. AMLODIPINE BESYLATE [Concomitant]
  8. LIPITOR [Concomitant]
  9. GASMOTIN (MOSAPRIDE CITRATE) [Concomitant]
  10. PANTOSIN (PANTETHINE) [Concomitant]
  11. MAGNESIUM OXIDE [Concomitant]
  12. SENNOSIDE (SENNOSIDE A+B CALCIUM) [Concomitant]
  13. SODIUM PICOSULFATE [Concomitant]
  14. HIBERNA (PROMETHAZINE HYDROCHLORIDE) [Concomitant]

REACTIONS (2)
  - DYSURIA [None]
  - PSYCHOMOTOR HYPERACTIVITY [None]
